FAERS Safety Report 7282986-3 (Version None)
Quarter: 2011Q1

REPORT INFORMATION
  Report Type: 
  Country: None (occurrence: None)
  Receive Date: 20110209
  Receipt Date: 20110131
  Transmission Date: 20110831
  Serious: Yes (Other)
  Sender: FDA-Public Use
  Company Number: US-JNJFOC-20110200779

PATIENT
  Sex: Male
  Weight: 126.1 kg

DRUGS (5)
  1. REMICADE [Suspect]
     Route: 042
  2. REMICADE [Suspect]
     Indication: SARCOIDOSIS
     Route: 042
  3. MINIRIN/DDAVP [Concomitant]
     Route: 065
  4. TESTOSTERONE [Concomitant]
     Indication: BLOOD TESTOSTERONE DECREASED
     Route: 050
  5. TOPROL-XL [Concomitant]
     Indication: TACHYCARDIA
     Route: 065

REACTIONS (3)
  - CONDITION AGGRAVATED [None]
  - URINE OUTPUT INCREASED [None]
  - BLOOD TESTOSTERONE DECREASED [None]
